FAERS Safety Report 6213985-8 (Version None)
Quarter: 2009Q2

REPORT INFORMATION
  Report Type: 
  Country: None (occurrence: None)
  Receive Date: 20090604
  Receipt Date: 20090505
  Transmission Date: 20091009
  Serious: No
  Sender: FDA-Public Use
  Company Number: US-BAYER-200920016NA

PATIENT
  Sex: Male

DRUGS (1)
  1. AVELOX [Suspect]
     Indication: BRONCHITIS
     Dates: start: 20090101

REACTIONS (10)
  - BALANCE DISORDER [None]
  - DYSPNOEA [None]
  - MUSCLE TWITCHING [None]
  - MUSCULAR WEAKNESS [None]
  - OXYGEN SATURATION DECREASED [None]
  - PALPITATIONS [None]
  - TACHYCARDIA [None]
  - TREMOR [None]
  - VERTIGO POSITIONAL [None]
  - VESTIBULAR DISORDER [None]
